FAERS Safety Report 23951285 (Version 1)
Quarter: 2024Q2

REPORT INFORMATION
  Report Type: Spontaneous
  Country: US (occurrence: US)
  Receive Date: 20240607
  Receipt Date: 20240607
  Transmission Date: 20240715
  Serious: Yes (Hospitalization)
  Sender: FDA-Public Use
  Company Number: US-SA-SAC20240605000434

PATIENT
  Age: 74 Year
  Sex: Male

DRUGS (1)
  1. DUPIXENT [Suspect]
     Active Substance: DUPILUMAB
     Indication: Asthma
     Dosage: 300 MG, QOW
     Route: 058
     Dates: start: 202004

REACTIONS (5)
  - Hypotension [Unknown]
  - Heart rate decreased [Unknown]
  - Cardiac disorder [Unknown]
  - Escherichia infection [Unknown]
  - Pyrexia [Unknown]

NARRATIVE: CASE EVENT DATE: 20240401
